FAERS Safety Report 12597497 (Version 6)
Quarter: 2023Q4

REPORT INFORMATION
  Report Type: Spontaneous
  Country: US (occurrence: US)
  Receive Date: 20160727
  Receipt Date: 20231207
  Transmission Date: 20240109
  Serious: No
  Sender: FDA-Public Use
  Company Number: US-PFIZER INC-2016327397

PATIENT
  Age: 58 Year
  Sex: Female

DRUGS (14)
  1. XELJANZ [Suspect]
     Active Substance: TOFACITINIB CITRATE
     Indication: Rheumatoid arthritis
     Dosage: 5 MG, 2X/DAY
     Route: 048
     Dates: start: 201603, end: 202302
  2. PREDNISONE [Suspect]
     Active Substance: PREDNISONE
     Indication: Rheumatoid arthritis
     Dosage: 2.5 MG
  3. PREDNISONE [Suspect]
     Active Substance: PREDNISONE
     Dosage: 5 MG
  4. ACETAMINOPHEN\HYDROCODONE [Concomitant]
     Active Substance: ACETAMINOPHEN\HYDROCODONE
     Dosage: UNK
  5. METHOTREXATE [Concomitant]
     Active Substance: METHOTREXATE
     Dosage: UNK
  6. VALSARTAN [Concomitant]
     Active Substance: VALSARTAN
     Dosage: UNK
  7. FOLIC ACID [Concomitant]
     Active Substance: FOLIC ACID
     Dosage: UNK
  8. ZOCOR [Concomitant]
     Active Substance: SIMVASTATIN
  9. COZAAR [Concomitant]
     Active Substance: LOSARTAN POTASSIUM
  10. XYZAL [Concomitant]
     Active Substance: LEVOCETIRIZINE DIHYDROCHLORIDE
  11. HYDROCODONE [Concomitant]
     Active Substance: HYDROCODONE
  12. OMEPRAZOLE [Concomitant]
     Active Substance: OMEPRAZOLE
  13. GABAPENTIN [Concomitant]
     Active Substance: GABAPENTIN
  14. MORNIFLUMATE [Concomitant]
     Active Substance: MORNIFLUMATE

REACTIONS (12)
  - Blood cholesterol increased [Unknown]
  - Malaise [Unknown]
  - Influenza [Unknown]
  - Arthralgia [Unknown]
  - Arthritis [Unknown]
  - Condition aggravated [Unknown]
  - Cyst [Unknown]
  - COVID-19 [Recovered/Resolved]
  - Bronchitis [Recovered/Resolved]
  - Sinus disorder [Not Recovered/Not Resolved]
  - Staphylococcal infection [Recovered/Resolved]
  - Hypertension [Unknown]

NARRATIVE: CASE EVENT DATE: 20230201
